FAERS Safety Report 23779966 (Version 1)
Quarter: 2024Q2

REPORT INFORMATION
  Report Type: Spontaneous
  Country: CN (occurrence: CN)
  Receive Date: 20240424
  Receipt Date: 20240424
  Transmission Date: 20240716
  Serious: Yes (Hospitalization)
  Sender: FDA-Public Use
  Company Number: CN-PFIZER INC-PV202400052846

PATIENT
  Age: 49 Year
  Sex: Female
  Weight: 43 kg

DRUGS (1)
  1. CYTARABINE [Suspect]
     Active Substance: CYTARABINE
     Indication: Acute leukaemia
     Dosage: 0.1 G, 2X/DAY
     Route: 058
     Dates: start: 20240309

REACTIONS (7)
  - Myelosuppression [Recovering/Resolving]
  - Infection [Recovered/Resolved]
  - Diarrhoea [Recovering/Resolving]
  - Immune system disorder [Unknown]
  - Dizziness [Unknown]
  - Discomfort [Unknown]
  - Coagulopathy [Unknown]

NARRATIVE: CASE EVENT DATE: 20240312
